FAERS Safety Report 7481280-5 (Version None)
Quarter: 2011Q2

REPORT INFORMATION
  Report Type: 
  Country: None (occurrence: None)
  Receive Date: 20110506
  Receipt Date: 20110426
  Transmission Date: 20111010
  Serious: Yes (Hospitalization, Other)
  Sender: FDA-Public Use
  Company Number: ACO_23642_2011

PATIENT
  Age: 63 Year
  Sex: Female
  Weight: 55.8 kg

DRUGS (15)
  1. AMPYRA [Suspect]
     Indication: MULTIPLE SCLEROSIS
     Dosage: SEE IMAGE
     Dates: start: 20100601, end: 20101201
  2. AMPYRA [Suspect]
     Indication: MULTIPLE SCLEROSIS
     Dosage: SEE IMAGE
     Dates: start: 20110419
  3. AMPYRA [Suspect]
     Indication: MULTIPLE SCLEROSIS
     Dosage: SEE IMAGE
     Dates: start: 20110201, end: 20110101
  4. AMPYRA [Suspect]
     Indication: MULTIPLE SCLEROSIS
     Dosage: SEE IMAGE
     Dates: start: 20110415, end: 20110418
  5. SENNA (SENNA ALEXANDRINA) [Concomitant]
  6. LEXAPRO [Concomitant]
  7. CARVEDILOL [Concomitant]
  8. LISINOPRIL [Concomitant]
  9. OXYBUTYNIN [Concomitant]
  10. CALCIUM (CALCIUM) [Concomitant]
  11. NORVASC [Concomitant]
  12. NUVIGIL [Concomitant]
  13. OMEPRAZOLE [Concomitant]
  14. VITAMIN D [Concomitant]
  15. VITAMIN E [Concomitant]

REACTIONS (15)
  - INAPPROPRIATE SCHEDULE OF DRUG ADMINISTRATION [None]
  - CAROTID ARTERIOSCLEROSIS [None]
  - FAECAL INCONTINENCE [None]
  - CYSTITIS [None]
  - CONVULSION [None]
  - MENTAL STATUS CHANGES [None]
  - UNRESPONSIVE TO STIMULI [None]
  - ENCEPHALITIC INFECTION [None]
  - MULTIPLE SCLEROSIS RELAPSE [None]
  - CENTRAL AUDITORY PROCESSING DISORDER [None]
  - HYPOPNOEA [None]
  - URINARY INCONTINENCE [None]
  - CEREBRAL ISCHAEMIA [None]
  - URINARY TRACT INFECTION [None]
  - ELECTROENCEPHALOGRAM ABNORMAL [None]
